FAERS Safety Report 20085580 (Version 1)
Quarter: 2021Q4

REPORT INFORMATION
  Report Type: Spontaneous
  Country: IT (occurrence: IT)
  Receive Date: 20211118
  Receipt Date: 20211118
  Transmission Date: 20220303
  Serious: Yes (Hospitalization, Other)
  Sender: FDA-Public Use
  Company Number: IT-PFM-2021-06226

PATIENT
  Age: 42 Year
  Sex: Male

DRUGS (6)
  1. REMIFENTANIL [Interacting]
     Active Substance: REMIFENTANIL
     Indication: Product used for unknown indication
     Dosage: UNK
     Route: 065
  2. AZITHROMYCIN [Interacting]
     Active Substance: AZITHROMYCIN
     Indication: Product used for unknown indication
     Dosage: UNK
     Route: 065
  3. MIDAZOLAM [Interacting]
     Active Substance: MIDAZOLAM
     Indication: Product used for unknown indication
     Dosage: UNK
     Route: 065
  4. CHLOROQUINE [Interacting]
     Active Substance: CHLOROQUINE
     Indication: Product used for unknown indication
     Dosage: UNK
     Route: 065
  5. REMDESIVIR [Interacting]
     Active Substance: REMDESIVIR
     Indication: Product used for unknown indication
     Dosage: UNK
     Route: 065
  6. PROPOFOL [Interacting]
     Active Substance: PROPOFOL
     Indication: Sedation
     Dosage: UNK
     Route: 065

REACTIONS (6)
  - Dysarthria [Recovering/Resolving]
  - Tongue movement disturbance [Recovering/Resolving]
  - Cranial nerve disorder [Recovering/Resolving]
  - Horner^s syndrome [Unknown]
  - Dysphagia [Recovered/Resolved]
  - Drug interaction [Unknown]
